FAERS Safety Report 6593557-6 (Version None)
Quarter: 2010Q1

REPORT INFORMATION
  Report Type: 
  Country: None (occurrence: None)
  Receive Date: 20100222
  Receipt Date: 20090811
  Transmission Date: 20100710
  Serious: Yes (Other)
  Sender: FDA-Public Use
  Company Number: US-BRISTOL-MYERS SQUIBB COMPANY-14711790

PATIENT
  Age: 79 Year
  Sex: Female

DRUGS (6)
  1. ORENCIA [Suspect]
     Indication: RHEUMATOID ARTHRITIS
     Dosage: RECEIVING TREATMENTS FOR 1 YEAR. FORM-INF. 1ST INF: 26JUL09 (500MG). CHANGED DOSE ON 4JUN08-750MG.
     Route: 042
     Dates: start: 20070926
  2. METHOTREXATE [Suspect]
     Indication: RHEUMATOID ARTHRITIS
     Dosage: THERAPY GIVEN PRIOR TO 2007
  3. CELEBREX [Concomitant]
  4. PREDNISONE [Concomitant]
  5. CREON [Concomitant]
  6. RAMIPRIL [Concomitant]

REACTIONS (1)
  - LUNG NEOPLASM MALIGNANT [None]
